FAERS Safety Report 9931623 (Version 2)
Quarter: 2014Q2

REPORT INFORMATION
  Report Type: Other
  Country: GB (occurrence: GB)
  Receive Date: 20140228
  Receipt Date: 20140602
  Transmission Date: 20141212
  Serious: Yes (Other)
  Sender: FDA-Public Use
  Company Number: GB-TARO PHARMACEUTICALS U.S.A., INC-2014SUN00401

PATIENT
  Age: 58 Year
  Sex: Male

DRUGS (9)
  1. WARFARIN [Suspect]
     Indication: CONGESTIVE CARDIOMYOPATHY
     Dosage: UNK
     Route: 048
  2. WARFARIN [Interacting]
     Indication: CONGESTIVE CARDIOMYOPATHY
     Dosage: DOSE REDUCE
     Route: 048
  3. WARFARIN [Interacting]
     Route: 048
  4. LUTEIN [Interacting]
     Indication: MACULAR DEGENERATION
     Dosage: LUTEIN AS RECOMMENDED BY THE OPTICIAN.
     Route: 048
     Dates: start: 20131102
  5. SALBUTAMOL [Concomitant]
     Dosage: 100 ?G, PRN
     Route: 055
  6. RAMIPRIL [Concomitant]
     Dosage: 10 MG, QD
  7. BISOPROLOL [Concomitant]
     Dosage: 10 MG, QD
  8. SIMVASTATIN [Concomitant]
     Dosage: 40 MG, QD (AT NIGHT)
  9. METFORMIN [Concomitant]
     Dosage: 500 MG, TID

REACTIONS (2)
  - Drug interaction [Unknown]
  - International normalised ratio increased [Recovered/Resolved]
